FAERS Safety Report 6822157-5 (Version None)
Quarter: 2010Q3

REPORT INFORMATION
  Report Type: 
  Country: None (occurrence: None)
  Receive Date: 20100708
  Receipt Date: 20100630
  Transmission Date: 20110219
  Serious: Yes (Other)
  Sender: FDA-Public Use
  Company Number: SE-JNJFOC-20100700164

PATIENT
  Age: 49 Year
  Sex: Male

DRUGS (8)
  1. HALDOL [Suspect]
     Indication: DELIRIUM
     Route: 042
  2. DIAZEPAM [Concomitant]
     Route: 065
  3. ZYPREXA [Concomitant]
     Route: 065
  4. CLONIDINE [Concomitant]
     Route: 065
  5. DOLCONTIN [Concomitant]
     Route: 065
  6. ALVEDON [Concomitant]
     Route: 065
  7. OXASCAND [Concomitant]
     Route: 065
  8. DALTEPARIN SODIUM [Concomitant]
     Route: 065

REACTIONS (1)
  - INCORRECT ROUTE OF DRUG ADMINISTRATION [None]
